FAERS Safety Report 23937564 (Version 1)
Quarter: 2024Q2

REPORT INFORMATION
  Report Type: Spontaneous
  Country: US (occurrence: US)
  Receive Date: 20240604
  Receipt Date: 20240604
  Transmission Date: 20240716
  Serious: No
  Sender: FDA-Public Use
  Company Number: US-Merck Healthcare KGaA-2024030093

PATIENT
  Age: 58 Year
  Sex: Female

DRUGS (1)
  1. MAVENCLAD [Suspect]
     Active Substance: CLADRIBINE
     Indication: Multiple sclerosis
     Dosage: TWO TABLETS FROM DAY FIRST TO FOUR THEN ONE TABLET ON DAY FIVE AT INTERVALS OF 24 HOURS.
     Route: 048
     Dates: start: 202405

REACTIONS (1)
  - Rash [Recovered/Resolved]
